FAERS Safety Report 5494263-1 (Version None)
Quarter: 2007Q4

REPORT INFORMATION
  Report Type: 
  Country: None (occurrence: None)
  Receive Date: 20071022
  Receipt Date: 20071010
  Transmission Date: 20080405
  Serious: Yes (Hospitalization, Other)
  Sender: FDA-Public Use
  Company Number: 2007BI021682

PATIENT
  Age: 23 Year
  Sex: Male
  Weight: 70.3075 kg

DRUGS (1)
  1. NATALIZUMAB [Suspect]
     Indication: MULTIPLE SCLEROSIS
     Dosage: 300 MG;QM;IM
     Route: 030
     Dates: start: 20070201, end: 20070601

REACTIONS (3)
  - COMA [None]
  - CONVULSION [None]
  - MULTIPLE SCLEROSIS [None]
